FAERS Safety Report 9296081 (Version 1)
Quarter: 2013Q2

REPORT INFORMATION
  Report Type: Spontaneous
  Country: JP (occurrence: JP)
  Receive Date: 20130517
  Receipt Date: 20130517
  Transmission Date: 20140414
  Serious: Yes (Other)
  Sender: FDA-Public Use
  Company Number: JP-PFIZER INC-2013151149

PATIENT
  Age: 80 Year
  Sex: Female

DRUGS (1)
  1. LYRICA [Suspect]
     Indication: ARTHRALGIA
     Dosage: UNK
     Route: 048
     Dates: start: 201301

REACTIONS (8)
  - Depressed level of consciousness [Unknown]
  - Cerebral haemorrhage [Recovered/Resolved]
  - Mineral deficiency [Unknown]
  - Somnolence [Not Recovered/Not Resolved]
  - Decreased appetite [Not Recovered/Not Resolved]
  - Dysgeusia [Not Recovered/Not Resolved]
  - Fall [Recovered/Resolved]
  - Hallucination [Recovered/Resolved]
